FAERS Safety Report 24073965 (Version 1)
Quarter: 2024Q3

REPORT INFORMATION
  Report Type: Other
  Country: KR (occurrence: KR)
  Receive Date: 20240710
  Receipt Date: 20240710
  Transmission Date: 20241017
  Serious: Yes (Life-Threatening, Hospitalization, Other)
  Sender: EYWA PHARMA
  Company Number: KR-Eywa Pharma Inc.-2159001

PATIENT
  Age: 40 Year
  Sex: Female

DRUGS (6)
  1. BACLOFEN [Suspect]
     Active Substance: BACLOFEN
     Indication: Headache
     Route: 065
  2. FLUMAZENIL [Concomitant]
     Active Substance: FLUMAZENIL
     Route: 065
  3. DEXIBUPROFEN [Concomitant]
     Active Substance: DEXIBUPROFEN
     Route: 065
  4. AFLOQUALONE [Concomitant]
     Active Substance: AFLOQUALONE
     Route: 065
  5. AMITRIPTYLINE HYDROCHLORIDE [Concomitant]
     Active Substance: AMITRIPTYLINE HYDROCHLORIDE
     Route: 065
  6. PHENYTOIN [Concomitant]
     Active Substance: PHENYTOIN
     Route: 065

REACTIONS (13)
  - Generalised tonic-clonic seizure [Recovering/Resolving]
  - Product use in unapproved indication [Unknown]
  - Dyspnoea [Recovering/Resolving]
  - Confusional state [Recovering/Resolving]
  - Electroencephalogram abnormal [Recovering/Resolving]
  - Stupor [Recovering/Resolving]
  - Mental status changes [Recovering/Resolving]
  - Toxicity to various agents [Recovering/Resolving]
  - Intracranial pressure increased [Recovering/Resolving]
  - Blood lactic acid increased [Recovering/Resolving]
  - Blood creatine phosphokinase increased [Recovering/Resolving]
  - Coma [Recovering/Resolving]
  - Mental impairment [Recovering/Resolving]
